FAERS Safety Report 6684643-0 (Version None)
Quarter: 2010Q2

REPORT INFORMATION
  Report Type: 
  Country: None (occurrence: None)
  Receive Date: 20100416
  Receipt Date: 20100413
  Transmission Date: 20101027
  Serious: Yes (Other)
  Sender: FDA-Public Use
  Company Number: US-RB-006715-10

PATIENT
  Age: 31 Year
  Sex: Female

DRUGS (2)
  1. SUBOXONE [Suspect]
     Dosage: TOOK VARIOUS DOSES
     Route: 060
     Dates: end: 20100401
  2. XANAX [Concomitant]
     Indication: MOOD SWINGS
     Dosage: TOOK DOSES( EXACT DOSING UNKNOWN) AS NEEDED
     Route: 065

REACTIONS (6)
  - DRUG WITHDRAWAL SYNDROME [None]
  - FEELING COLD [None]
  - IRRITABILITY [None]
  - MALAISE [None]
  - SUICIDAL IDEATION [None]
  - TREMOR [None]
